FAERS Safety Report 6466203-X (Version None)
Quarter: 2009Q4

REPORT INFORMATION
  Report Type: 
  Country: None (occurrence: None)
  Receive Date: 20091202
  Receipt Date: 20091117
  Transmission Date: 20100525
  Serious: Yes (Hospitalization, Other)
  Sender: FDA-Public Use
  Company Number: PHHY2009GB42426

PATIENT
  Sex: Male

DRUGS (5)
  1. CLOZARIL [Suspect]
     Dosage: UNK
     Dates: start: 19970101
  2. CLOZARIL [Suspect]
     Dosage: 500 MG, UNK
     Dates: start: 20021113, end: 20090629
  3. CLOZARIL [Suspect]
     Dosage: 25 MG, UNK
     Route: 048
     Dates: start: 20090807
  4. CLOZARIL [Suspect]
     Dosage: UNK
     Dates: start: 20090709
  5. CLOZAPINE [Concomitant]
     Dosage: UNK
     Dates: start: 20090715, end: 20090806

REACTIONS (6)
  - CONVULSION [None]
  - ELECTROLYTE IMBALANCE [None]
  - FLUID INTAKE REDUCED [None]
  - HYPOPHAGIA [None]
  - MUTISM [None]
  - URINARY INCONTINENCE [None]
